FAERS Safety Report 20323926 (Version 2)
Quarter: 2022Q1

REPORT INFORMATION
  Report Type: Report from Study
  Country: US (occurrence: US)
  Receive Date: 20220111
  Receipt Date: 20220118
  Transmission Date: 20220423
  Serious: Yes (Hospitalization, Other)
  Sender: FDA-Public Use
  Company Number: US-PFIZER INC-202200004598

PATIENT
  Age: 56 Year
  Sex: Male
  Weight: 79.9 kg

DRUGS (3)
  1. CARBOPLATIN [Suspect]
     Active Substance: CARBOPLATIN
     Indication: Pancreatic carcinoma metastatic
     Dosage: AUC 6, OVER 30 MIN ON DAY 1, CYCLE 21 DAYS
     Route: 042
     Dates: start: 20180829
  2. TALAZOPARIB [Suspect]
     Active Substance: TALAZOPARIB
     Indication: Pancreatic carcinoma metastatic
     Dosage: 250 UG, CYCLE 21 DAYS: DAYS 1-3
     Route: 048
     Dates: start: 20180829
  3. TAXOL [Suspect]
     Active Substance: PACLITAXEL
     Indication: Pancreatic carcinoma metastatic
     Dosage: 80 MG/M2, OVER 1 HR ON DAYS 1, 8 AND 15, CYCLE 21 DAYS
     Route: 042
     Dates: start: 20180829

REACTIONS (3)
  - Sepsis [Unknown]
  - Platelet count decreased [Unknown]
  - Anaemia [Unknown]

NARRATIVE: CASE EVENT DATE: 20180916
